FAERS Safety Report 6398731-X (Version None)
Quarter: 2009Q4

REPORT INFORMATION
  Report Type: 
  Country: None (occurrence: None)
  Receive Date: 20091013
  Receipt Date: 20091009
  Transmission Date: 20100525
  Serious: Yes (Death, Other)
  Sender: FDA-Public Use
  Company Number: PHHY2009BR43690

PATIENT
  Sex: Female

DRUGS (3)
  1. TEGRETOL [Suspect]
     Dosage: UNK
  2. ENALAPRIL MALEATE [Concomitant]
     Dosage: UNK
  3. PRIMIDONE [Concomitant]
     Dosage: UNK

REACTIONS (4)
  - CONVULSION [None]
  - DEATH [None]
  - INSOMNIA [None]
  - PAIN [None]
